FAERS Safety Report 25771395 (Version 1)
Quarter: 2025Q3

REPORT INFORMATION
  Report Type: Spontaneous
  Country: US (occurrence: US)
  Receive Date: 20250908
  Receipt Date: 20250908
  Transmission Date: 20251021
  Serious: No
  Sender: DOMPE FARMACEUTICI
  Company Number: US-FARMAPROD-202504-1310

PATIENT
  Sex: Female

DRUGS (13)
  1. OXERVATE [Suspect]
     Active Substance: CENEGERMIN-BKBJ
     Indication: Neurotrophic keratopathy
     Route: 047
     Dates: start: 20250409
  2. REFRESH CLASSIC [Concomitant]
     Active Substance: POLYVINYL ALCOHOL\POVIDONE
  3. VALSARTAN [Concomitant]
     Active Substance: VALSARTAN
  4. MIDODRINE HYDROCHLORIDE [Concomitant]
     Active Substance: MIDODRINE HYDROCHLORIDE
  5. ADVIL [Concomitant]
     Active Substance: IBUPROFEN
  6. VASCEPA [Concomitant]
     Active Substance: ICOSAPENT ETHYL
  7. DOCUSATE SODIUM [Concomitant]
     Active Substance: DOCUSATE SODIUM
  8. SENNA [Concomitant]
     Active Substance: SENNOSIDES
  9. VITAMIN D2 [Concomitant]
     Active Substance: ERGOCALCIFEROL
  10. TRAMADOL HCL [Concomitant]
     Active Substance: TRAMADOL HYDROCHLORIDE
  11. GABAPENTIN [Concomitant]
     Active Substance: GABAPENTIN
  12. FIASP  FLEXTOUCH [Concomitant]
  13. TRESIBA [Concomitant]
     Active Substance: INSULIN DEGLUDEC

REACTIONS (2)
  - Photophobia [Unknown]
  - Eye pain [Unknown]
